FAERS Safety Report 19722251 (Version 1)
Quarter: 2021Q3

REPORT INFORMATION
  Report Type: Report from Study
  Country: US (occurrence: US)
  Receive Date: 20210819
  Receipt Date: 20210819
  Transmission Date: 20211014
  Serious: Yes (Hospitalization)
  Sender: FDA-Public Use
  Company Number: US-SEATTLE GENETICS-2021SGN03271

PATIENT
  Sex: Female

DRUGS (1)
  1. TUCATINIB [Suspect]
     Active Substance: TUCATINIB
     Indication: PRODUCT USED FOR UNKNOWN INDICATION
     Dosage: 150 MG

REACTIONS (6)
  - Adverse drug reaction [Unknown]
  - Diarrhoea [Unknown]
  - Skin irritation [Unknown]
  - Hospitalisation [Unknown]
  - Swelling [Unknown]
  - Peripheral swelling [Unknown]
